FAERS Safety Report 17265557 (Version 2)
Quarter: 2020Q2

REPORT INFORMATION
  Report Type: Spontaneous
  Country: FR (occurrence: FR)
  Receive Date: 20200114
  Receipt Date: 20200423
  Transmission Date: 20200713
  Serious: No
  Sender: FDA-Public Use
  Company Number: FR-SA-2020SA006449

PATIENT
  Age: 31 Year
  Sex: Female

DRUGS (3)
  1. DUPIXENT [Suspect]
     Active Substance: DUPILUMAB
     Indication: ECZEMA
     Dosage: 600 MG, 1X
     Dates: start: 20191217, end: 20191217
  2. KETOPROFEN. [Concomitant]
     Active Substance: KETOPROFEN
     Indication: LIPOMA
  3. DUPIXENT [Suspect]
     Active Substance: DUPILUMAB
     Dosage: 300 MG
     Dates: start: 20191231

REACTIONS (3)
  - Arthralgia [Recovering/Resolving]
  - Asthenia [Unknown]
  - Helplessness [Unknown]

NARRATIVE: CASE EVENT DATE: 20200102
